FAERS Safety Report 8396035-7 (Version None)
Quarter: 2012Q2

REPORT INFORMATION
  Report Type: 
  Country: None (occurrence: None)
  Receive Date: 20120530
  Receipt Date: 20120528
  Transmission Date: 20120825
  Serious: No
  Sender: FDA-Public Use
  Company Number: US-PFIZER INC-2012127753

PATIENT
  Sex: Female

DRUGS (2)
  1. ADVIL PM [Suspect]
     Dosage: 3 DF, UNK
     Route: 048
     Dates: start: 20120501
  2. ADVIL PM [Suspect]
     Dosage: UNK
     Route: 048

REACTIONS (3)
  - EXPIRED DRUG ADMINISTERED [None]
  - INSOMNIA [None]
  - OVERDOSE [None]
